FAERS Safety Report 15353307 (Version 1)
Quarter: 2018Q3

REPORT INFORMATION
  Report Type: Report from Study
  Country: FR (occurrence: FR)
  Receive Date: 20180905
  Receipt Date: 20180905
  Transmission Date: 20181010
  Serious: Yes (Life-Threatening, Other)
  Sender: FDA-Public Use
  Company Number: FR-CHIESI USA INC.-FR-2018CHI000224

PATIENT
  Age: 0 Day
  Sex: Male
  Weight: 2.31 kg

DRUGS (6)
  1. CUROSURF [Suspect]
     Active Substance: PORACTANT ALFA
     Dosage: 100 MG/KG, UNK
     Route: 007
     Dates: start: 20180725, end: 20180725
  2. CUROSURF [Suspect]
     Active Substance: PORACTANT ALFA
     Dosage: 100 MG/KG, UNK
     Route: 007
     Dates: start: 20180726, end: 20180726
  3. CUROSURF [Suspect]
     Active Substance: PORACTANT ALFA
     Indication: NEONATAL RESPIRATORY DISTRESS SYNDROME
     Dosage: 200 MG/KG, UNK
     Route: 007
     Dates: start: 20180725, end: 20180725
  4. GENTAMYCIN                         /00047101/ [Concomitant]
     Active Substance: GENTAMICIN
     Indication: INFECTION PROPHYLAXIS
     Dosage: 10 MG, QD
     Route: 042
     Dates: start: 20180725, end: 20180725
  5. AMOXICILLIN. [Concomitant]
     Active Substance: AMOXICILLIN
     Indication: INFECTION PROPHYLAXIS
     Dosage: 116 MG, QD
     Route: 042
     Dates: start: 20180725, end: 20180727
  6. PARACETAMOL [Concomitant]
     Active Substance: ACETAMINOPHEN
     Indication: PAIN
     Dosage: 23 MG, QID
     Dates: start: 20180725

REACTIONS (3)
  - Pneumothorax [Recovered/Resolved]
  - Haemothorax [Unknown]
  - Inappropriate schedule of drug administration [Recovered/Resolved]

NARRATIVE: CASE EVENT DATE: 20180725
